FAERS Safety Report 15146532 (Version 1)
Quarter: 2018Q3

REPORT INFORMATION
  Report Type: Report from Study
  Country: None (occurrence: US)
  Receive Date: 20180715
  Receipt Date: 20180715
  Transmission Date: 20181010
  Serious: Yes (Other)
  Sender: FDA-Public Use
  Company Number: US-ABBVIE-18K-163-2334259-00

PATIENT
  Sex: Male

DRUGS (1)
  1. HUMIRA [Suspect]
     Active Substance: ADALIMUMAB
     Indication: HIDRADENITIS
     Route: 058
     Dates: start: 201708

REACTIONS (6)
  - Arthralgia [Unknown]
  - Vision blurred [Unknown]
  - Post-traumatic stress disorder [Unknown]
  - Swelling [Recovered/Resolved]
  - Headache [Unknown]
  - Accident [Unknown]
